FAERS Safety Report 21816733 (Version 2)
Quarter: 2023Q1

REPORT INFORMATION
  Report Type: Report from Study
  Country: EG (occurrence: EG)
  Receive Date: 20230104
  Receipt Date: 20230107
  Transmission Date: 20230417
  Serious: Yes (Death, Hospitalization)
  Sender: FDA-Public Use
  Company Number: EG-002147023-NVSC2023EG001225

PATIENT
  Age: 71 Year
  Sex: Female

DRUGS (1)
  1. HYRIMOZ [Suspect]
     Active Substance: ADALIMUMAB-ADAZ
     Indication: Rheumatoid arthritis
     Dosage: 40 MG, Q2W (EVERY 15 DAYS)
     Route: 058
     Dates: start: 20211229, end: 20220912

REACTIONS (2)
  - Platelet count decreased [Fatal]
  - Anaemia [Fatal]

NARRATIVE: CASE EVENT DATE: 20220914
